FAERS Safety Report 14907723 (Version 1)
Quarter: 2018Q2

REPORT INFORMATION
  Report Type: Spontaneous
  Country: CA (occurrence: CA)
  Receive Date: 20180517
  Receipt Date: 20180517
  Transmission Date: 20180711
  Serious: Yes (Other)
  Sender: FDA-Public Use
  Company Number: CA-ORION CORPORATION ORION PHARMA-TREX2018-1471

PATIENT
  Sex: Male

DRUGS (4)
  1. RAN-PANTOPRAZOLE [Suspect]
     Active Substance: PANTOPRAZOLE SODIUM
     Route: 065
  2. EURO FOLIC [Suspect]
     Active Substance: FOLIC ACID
     Dosage: STRENGTH- 5 MG
     Route: 048
  3. APO-METHOTREXATE [Suspect]
     Active Substance: METHOTREXATE
     Dosage: STRENGTH- 2.5 MG
     Route: 048
  4. METHOTREXATE (TRADE NAME UNKNOWN) [Suspect]
     Active Substance: METHOTREXATE
     Route: 048

REACTIONS (1)
  - Crohn^s disease [Unknown]
